FAERS Safety Report 12568995 (Version 6)
Quarter: 2016Q4

REPORT INFORMATION
  Report Type: Report from Study
  Country: US (occurrence: US)
  Receive Date: 20160719
  Receipt Date: 20161111
  Transmission Date: 20170207
  Serious: No
  Sender: FDA-Public Use
  Company Number: PHEH2016US017411

PATIENT
  Age: 61 Year
  Sex: Female

DRUGS (3)
  1. COSENTYX [Suspect]
     Active Substance: SECUKINUMAB
     Dosage: 300 MG, QMO
     Route: 058
     Dates: start: 20160726
  2. PREDNISONE. [Suspect]
     Active Substance: PREDNISONE
     Indication: PRURITUS
     Route: 065
  3. COSENTYX [Suspect]
     Active Substance: SECUKINUMAB
     Indication: PSORIASIS
     Dosage: UNK
     Route: 058
     Dates: start: 20160523

REACTIONS (7)
  - Urticaria [Recovered/Resolved]
  - Weight increased [Unknown]
  - Dermatitis allergic [Not Recovered/Not Resolved]
  - Psoriasis [Unknown]
  - Pruritus generalised [Unknown]
  - Headache [Unknown]
  - Dyspnoea [Unknown]

NARRATIVE: CASE EVENT DATE: 20160927
